FAERS Safety Report 7426989-4 (Version None)
Quarter: 2011Q2

REPORT INFORMATION
  Report Type: 
  Country: None (occurrence: None)
  Receive Date: 20110420
  Receipt Date: 20110414
  Transmission Date: 20111010
  Serious: Yes (Hospitalization, Other)
  Sender: FDA-Public Use
  Company Number: US-ABBOTT-11P-163-0718886-00

PATIENT
  Sex: Female
  Weight: 108.96 kg

DRUGS (5)
  1. HYDROCHLOROTHIAZIDE [Concomitant]
     Indication: PRODUCT USED FOR UNKNOWN INDICATION
  2. COUMADIN [Concomitant]
     Indication: PRODUCT USED FOR UNKNOWN INDICATION
  3. HUMIRA [Suspect]
     Indication: RHEUMATOID ARTHRITIS
     Route: 058
     Dates: start: 20110201, end: 20110301
  4. SYNTHROID [Concomitant]
     Indication: PRODUCT USED FOR UNKNOWN INDICATION
  5. HUMIRA [Suspect]
     Dates: start: 20110301

REACTIONS (10)
  - DYSARTHRIA [None]
  - HAEMOGLOBIN DECREASED [None]
  - THALAMIC INFARCTION [None]
  - GRAND MAL CONVULSION [None]
  - UNRESPONSIVE TO STIMULI [None]
  - CONFUSIONAL STATE [None]
  - VIITH NERVE PARALYSIS [None]
  - HEMIPARESIS [None]
  - SUBCUTANEOUS HAEMATOMA [None]
  - DRUG INEFFECTIVE [None]
